FAERS Safety Report 18340995 (Version 1)
Quarter: 2020Q4

REPORT INFORMATION
  Report Type: Spontaneous
  Country: GB (occurrence: GB)
  Receive Date: 20201003
  Receipt Date: 20201003
  Transmission Date: 20210113
  Serious: Yes (Hospitalization)
  Sender: FDA-Public Use
  Company Number: GB-TEVA-2020-GB-1833642

PATIENT
  Age: 70 Year
  Sex: Male
  Weight: 95 kg

DRUGS (18)
  1. FUROSEMIDE. [Concomitant]
     Active Substance: FUROSEMIDE
  2. FINASTERIDE. [Concomitant]
     Active Substance: FINASTERIDE
  3. ALLOPURINOL. [Suspect]
     Active Substance: ALLOPURINOL
     Indication: GOUT
     Dosage: 300 MG
     Route: 048
  4. CETIRIZINE [Concomitant]
     Active Substance: CETIRIZINE HYDROCHLORIDE
  5. KETOCONAZOLE. [Concomitant]
     Active Substance: KETOCONAZOLE
  6. ATORVASTATIN [Concomitant]
     Active Substance: ATORVASTATIN
  7. RAMIPRIL. [Concomitant]
     Active Substance: RAMIPRIL
  8. CODEINE [Concomitant]
     Active Substance: CODEINE
  9. PARACETAMOL [Concomitant]
     Active Substance: ACETAMINOPHEN
  10. FERROUS SULFATE. [Concomitant]
     Active Substance: FERROUS SULFATE
  11. BISOPROLOL [Concomitant]
     Active Substance: BISOPROLOL
  12. TRIMBOW [Concomitant]
     Active Substance: BECLOMETHASONE DIPROPIONATE\FORMOTEROL FUMARATE\GLYCOPYRROLATE
  13. ACETYLSALICYLIC ACID [Concomitant]
     Active Substance: ASPIRIN
  14. EZETIMIBE. [Concomitant]
     Active Substance: EZETIMIBE
  15. SALBUTAMOL [Concomitant]
     Active Substance: ALBUTEROL
  16. GLYCERYL TRINITRATE [Concomitant]
     Active Substance: NITROGLYCERIN
  17. SPIRONOLACTONE. [Concomitant]
     Active Substance: SPIRONOLACTONE
  18. ISOSORBIDE MONONITRATE. [Concomitant]
     Active Substance: ISOSORBIDE MONONITRATE

REACTIONS (8)
  - Rash maculo-papular [Unknown]
  - Pallor [Unknown]
  - Mouth ulceration [Unknown]
  - Scab [Unknown]
  - Stevens-Johnson syndrome [Unknown]
  - Acute kidney injury [Recovering/Resolving]
  - Drug reaction with eosinophilia and systemic symptoms [Unknown]
  - Liver function test abnormal [Unknown]
